FAERS Safety Report 7535396-5 (Version None)
Quarter: 2011Q2

REPORT INFORMATION
  Report Type: 
  Country: None (occurrence: None)
  Receive Date: 20110609
  Receipt Date: 20080509
  Transmission Date: 20111010
  Serious: Yes (Disabling, Other)
  Sender: FDA-Public Use
  Company Number: PHHY2008BR07932

PATIENT
  Age: 79 Year
  Sex: Female

DRUGS (2)
  1. DIOVAN HCT [Suspect]
     Indication: HYPERTENSION
     Dosage: 80/12.5 MG DAILY
     Route: 048
     Dates: start: 20060101
  2. EXELON [Suspect]
     Indication: AMNESIA
     Dosage: 1.5 MG, QD
     Route: 048
     Dates: start: 20080201

REACTIONS (7)
  - JOINT SWELLING [None]
  - FALL [None]
  - LIMB INJURY [None]
  - LIMB DISCOMFORT [None]
  - INFECTION [None]
  - GAIT DISTURBANCE [None]
  - OEDEMA PERIPHERAL [None]
